FAERS Safety Report 15498251 (Version 1)
Quarter: 2018Q4

REPORT INFORMATION
  Report Type: Spontaneous
  Country: SG (occurrence: SG)
  Receive Date: 20181015
  Receipt Date: 20181015
  Transmission Date: 20190205
  Serious: Yes (Other)
  Sender: FDA-Public Use
  Company Number: SG-BAUSCH-BL-2018-027855

PATIENT
  Age: 46 Year
  Sex: Female

DRUGS (2)
  1. DICLOFENAC [Suspect]
     Active Substance: DICLOFENAC
     Indication: MIGRAINE
     Dosage: ALMOST DAILY
     Route: 065
  2. PANADOL [Suspect]
     Active Substance: ACETAMINOPHEN
     Indication: MIGRAINE
     Dosage: ALMOST DAILY
     Route: 065

REACTIONS (3)
  - Loss of personal independence in daily activities [Unknown]
  - Medication overuse headache [Recovering/Resolving]
  - Self-medication [Recovered/Resolved]
